FAERS Safety Report 12998256 (Version 1)
Quarter: 2016Q4

REPORT INFORMATION
  Report Type: Spontaneous
  Country: CA (occurrence: CA)
  Receive Date: 20161205
  Receipt Date: 20161205
  Transmission Date: 20170207
  Serious: Yes (Death)
  Sender: FDA-Public Use
  Company Number: CA-SA-2016SA200093

PATIENT
  Age: 25 Year
  Sex: Male

DRUGS (15)
  1. BUSPIRONE [Concomitant]
     Active Substance: BUSPIRONE HYDROCHLORIDE
     Dates: end: 20160320
  2. LACTULOSE. [Concomitant]
     Active Substance: LACTULOSE
     Dates: end: 20160320
  3. LACTOBACILLUS [Concomitant]
     Active Substance: LACTOBACILLUS ACIDOPHILUS
     Dates: end: 20160320
  4. KEPPRA [Concomitant]
     Active Substance: LEVETIRACETAM
     Dates: end: 20160320
  5. LEVOTHYROXINE. [Concomitant]
     Active Substance: LEVOTHYROXINE
     Dates: end: 20160320
  6. CLOBAZAM [Concomitant]
     Active Substance: CLOBAZAM
     Dates: end: 20160320
  7. LORAZEPAM. [Concomitant]
     Active Substance: LORAZEPAM
     Dates: end: 20160320
  8. CLONAZEPAM. [Concomitant]
     Active Substance: CLONAZEPAM
     Dates: end: 20160320
  9. PHENYTOIN. [Concomitant]
     Active Substance: PHENYTOIN
     Dates: end: 20160320
  10. DIAZEPAM. [Concomitant]
     Active Substance: DIAZEPAM
     Dates: end: 20160320
  11. MIDAZOLAM [Concomitant]
     Active Substance: MIDAZOLAM\MIDAZOLAM HYDROCHLORIDE
     Dates: end: 20160320
  12. CEREZYME [Suspect]
     Active Substance: IMIGLUCERASE
     Indication: GAUCHER^S DISEASE TYPE III
     Dosage: DOSE:2000 UNIT(S)
     Route: 042
  13. LANSOPRAZOLE. [Concomitant]
     Active Substance: LANSOPRAZOLE
     Dates: end: 20160320
  14. TOPIRAMATE. [Concomitant]
     Active Substance: TOPIRAMATE
     Dates: end: 20160320
  15. ACETAMINOPHEN. [Concomitant]
     Active Substance: ACETAMINOPHEN
     Dates: end: 20160320

REACTIONS (2)
  - Seizure [Fatal]
  - Pneumonia [Fatal]
